FAERS Safety Report 21307714 (Version 4)
Quarter: 2022Q4

REPORT INFORMATION
  Report Type: Spontaneous
  Country: IN (occurrence: IN)
  Receive Date: 20220908
  Receipt Date: 20221230
  Transmission Date: 20230112
  Serious: Yes (Hospitalization, Other)
  Sender: FDA-Public Use
  Company Number: IN-PFIZER INC-PV202200058115

PATIENT
  Age: 65 Year
  Sex: Female
  Weight: 62 kg

DRUGS (10)
  1. PALBOCICLIB [Suspect]
     Active Substance: PALBOCICLIB
     Dosage: 125 MG, 1X/DAY
     Route: 048
     Dates: start: 202201, end: 202207
  2. PALBOCICLIB [Suspect]
     Active Substance: PALBOCICLIB
     Dosage: 100 MG, 3WKS
  3. PALBOCICLIB [Suspect]
     Active Substance: PALBOCICLIB
     Dosage: UNK
     Dates: start: 20220621, end: 20220630
  4. PALBOCICLIB [Suspect]
     Active Substance: PALBOCICLIB
     Dosage: UNK
     Dates: start: 20221028, end: 20221117
  5. FULVESTRANT [Concomitant]
     Active Substance: FULVESTRANT
     Dosage: UNK
  6. AMLODIPINE BESYLATE [Concomitant]
     Active Substance: AMLODIPINE BESYLATE
     Dosage: 5 MG, 2X/DAY (1-0-1)
  7. TENGLYN M [Concomitant]
     Dosage: UNK, 2X/DAY (20/500, 1-0-1)
  8. MINERALS\VITAMINS [Concomitant]
     Active Substance: MINERALS\VITAMINS
     Dosage: UNK, 0-1-0
  9. ARKAMIN [Concomitant]
     Dosage: 150 MG, 0-0-1
  10. SODAMINT [SODIUM BICARBONATE] [Concomitant]
     Dosage: UNK, 1-0-1

REACTIONS (24)
  - Ludwig angina [Recovering/Resolving]
  - Tooth infection [Unknown]
  - Lymphocyte percentage decreased [Unknown]
  - C-reactive protein increased [Unknown]
  - Neoplasm progression [Unknown]
  - Blood glucose abnormal [Unknown]
  - Blood creatinine abnormal [Unknown]
  - Glycosylated haemoglobin increased [Unknown]
  - Blood urea increased [Unknown]
  - Full blood count abnormal [Unknown]
  - Lymphocyte count decreased [Unknown]
  - Basophil percentage decreased [Unknown]
  - Haemoglobin decreased [Unknown]
  - Haematocrit decreased [Unknown]
  - Monocyte percentage [Unknown]
  - Neutrophil percentage increased [Unknown]
  - Red blood cell count decreased [Unknown]
  - Red cell distribution width increased [Unknown]
  - Prothrombin time shortened [Unknown]
  - Blood sodium decreased [Unknown]
  - Tri-iodothyronine decreased [Unknown]
  - Blood calcium decreased [Unknown]
  - Wound [Unknown]
  - Full blood count decreased [Unknown]

NARRATIVE: CASE EVENT DATE: 20220101
